FAERS Safety Report 21801038 (Version 2)
Quarter: 2023Q2

REPORT INFORMATION
  Report Type: Other
  Country: CA (occurrence: None)
  Receive Date: 20221230
  Receipt Date: 20230511
  Transmission Date: 20230721
  Serious: Yes (Other)
  Sender: FDA-Public Use
  Company Number: CA-ROCHE-2448240

PATIENT
  Age: 41 Year
  Sex: Male

DRUGS (5)
  1. OCREVUS [Suspect]
     Active Substance: OCRELIZUMAB
     Indication: Primary progressive multiple sclerosis
     Dosage: 300 MG AT DAY 0 AND 14, THEN 600 MG EVERY 6 MONTH
     Route: 042
     Dates: start: 20180413
  2. OCREVUS [Suspect]
     Active Substance: OCRELIZUMAB
     Dosage: 600MG/500ML
     Route: 042
     Dates: start: 20191021
  3. GABAPENTIN [Concomitant]
     Active Substance: GABAPENTIN
     Dosage: 300 MG 3 TIMES PER DAY
  4. BACLOFEN [Concomitant]
     Active Substance: BACLOFEN
     Dosage: 10 MG 3 TIMES PER DAY
  5. DALFAMPRIDINE [Concomitant]
     Active Substance: DALFAMPRIDINE
     Dosage: 10 MG TWICE PER DAY

REACTIONS (4)
  - Mobility decreased [Not Recovered/Not Resolved]
  - Tremor [Not Recovered/Not Resolved]
  - Sensory loss [Recovered/Resolved]
  - Gait disturbance [Unknown]

NARRATIVE: CASE EVENT DATE: 20191001
